FAERS Safety Report 4613234-8 (Version None)
Quarter: 2005Q1

REPORT INFORMATION
  Report Type: 
  Country: None (occurrence: None)
  Receive Date: 20050315
  Receipt Date: 20050228
  Transmission Date: 20050727
  Serious: Yes (Death, Life-Threatening, Hospitalization)
  Sender: FDA-Public Use
  Company Number: US_0501111566

PATIENT
  Age: 39 Year
  Sex: Male

DRUGS (8)
  1. XIGRIS [Suspect]
     Indication: SEPSIS
     Dosage: 24 UG/KG/HR
     Dates: start: 20050121
  2. AMIKACIN [Concomitant]
  3. UNSPECIFIED [Concomitant]
  4. INSULIN [Concomitant]
  5. POTASSIUM CHLORIDE [Concomitant]
  6. CORTICOID [Concomitant]
  7. NORADRENALINE [Concomitant]
  8. DOBUTAMINE HCL [Concomitant]

REACTIONS (7)
  - ACUTE MYOCARDIAL INFARCTION [None]
  - CARDIAC ARREST [None]
  - CARDIOGENIC SHOCK [None]
  - DYSPNOEA [None]
  - GENERAL PHYSICAL HEALTH DETERIORATION [None]
  - PYREXIA [None]
  - VENTRICULAR FIBRILLATION [None]
